FAERS Safety Report 4337813-0 (Version None)
Quarter: 2004Q2

REPORT INFORMATION
  Report Type: 
  Country: None (occurrence: None)
  Receive Date: 20040413
  Receipt Date: 20040210
  Transmission Date: 20050107
  Serious: Yes (Death)
  Sender: FDA-Public Use
  Company Number: PHRM2004FR00823

PATIENT
  Age: 77 Year
  Sex: Male
  Weight: 84 kg

DRUGS (5)
  1. TAREG [Suspect]
     Indication: HYPERTENSION
     Dosage: 160 MG, QD
     Route: 048
     Dates: start: 20010601, end: 20040112
  2. ALPRESS [Suspect]
     Indication: HYPERTENSION
     Dosage: 5 MG, DAILY
     Route: 048
     Dates: start: 20010601, end: 20040101
  3. VASTEN [Suspect]
     Indication: HYPERCHOLESTEROLAEMIA
     Dosage: 20 MG, DAILY
     Route: 048
     Dates: start: 20010601, end: 20040101
  4. ALLOPURINOL [Suspect]
     Indication: GOUT
     Dosage: 100 MG, DAILY
     Route: 048
     Dates: end: 20040101
  5. TOCOPHEROL CONCENTRATE CAP [Concomitant]
     Indication: HYPERCHOLESTEROLAEMIA
     Dosage: 500 MG, DAILY
     Route: 048
     Dates: end: 20040101

REACTIONS (8)
  - ABDOMINAL PAIN [None]
  - ANAEMIA [None]
  - DISORIENTATION [None]
  - FATIGUE [None]
  - METASTASES TO LIVER [None]
  - OEDEMA [None]
  - RENAL CELL CARCINOMA STAGE UNSPECIFIED [None]
  - WEIGHT DECREASED [None]
